FAERS Safety Report 7220317-5 (Version None)
Quarter: 2011Q1

REPORT INFORMATION
  Report Type: 
  Country: None (occurrence: None)
  Receive Date: 20110111
  Receipt Date: 20101228
  Transmission Date: 20110831
  Serious: No
  Sender: FDA-Public Use
  Company Number: US-B.I. PHARMACEUTICALS,INC./RIDGEFIELD-2011-BP-00305BP

PATIENT
  Age: 54 Year
  Sex: Female

DRUGS (6)
  1. PROZAC [Concomitant]
     Indication: MOOD SWINGS
     Dosage: 20 MG
     Route: 048
  2. ALLEGRA [Concomitant]
     Indication: SEASONAL ALLERGY
     Dosage: 180 MG
     Route: 048
     Dates: start: 20050101
  3. FLEXERIL [Concomitant]
     Indication: MIGRAINE
     Route: 048
  4. MICARDIS HCT [Suspect]
     Indication: HYPERTENSION
     Route: 048
     Dates: start: 20090101
  5. MOTRIN [Concomitant]
     Indication: MIGRAINE
     Route: 048
  6. LASIX [Concomitant]
     Indication: FLUID RETENTION
     Dosage: 20 MG
     Route: 048
     Dates: start: 20090101

REACTIONS (2)
  - BACK PAIN [None]
  - PARAESTHESIA [None]
